FAERS Safety Report 16492132 (Version 3)
Quarter: 2019Q3

REPORT INFORMATION
  Report Type: Report from Study
  Country: US (occurrence: US)
  Receive Date: 20190628
  Receipt Date: 20190802
  Transmission Date: 20191004
  Serious: Yes (Other)
  Sender: FDA-Public Use
  Company Number: PHEH2019US027092

PATIENT
  Sex: Male

DRUGS (1)
  1. PROMACTA [Suspect]
     Active Substance: ELTROMBOPAG OLAMINE
     Indication: PRODUCT USED FOR UNKNOWN INDICATION
     Route: 065

REACTIONS (8)
  - Cerebrovascular accident [Unknown]
  - Chest pain [Unknown]
  - Arterial occlusive disease [Unknown]
  - Platelet count decreased [Unknown]
  - Hepatitis [Unknown]
  - Renal failure [Unknown]
  - Myocardial infarction [Unknown]
  - Hepatic failure [Unknown]
